FAERS Safety Report 7736077-5 (Version None)
Quarter: 2011Q3

REPORT INFORMATION
  Report Type: 
  Country: None (occurrence: None)
  Receive Date: 20110908
  Receipt Date: 20110824
  Transmission Date: 20111222
  Serious: Yes (Other)
  Sender: FDA-Public Use
  Company Number: US-JNJFOC-20110812841

PATIENT
  Sex: Female
  Weight: 58.97 kg

DRUGS (5)
  1. FLONASE [Concomitant]
     Indication: RHINITIS ALLERGIC
     Route: 045
  2. LOESTRIN 1.5/30 [Concomitant]
     Indication: CONTRACEPTION
     Route: 048
  3. LORATADINE [Concomitant]
     Indication: MULTIPLE ALLERGIES
     Route: 048
  4. ELMIRON [Suspect]
     Indication: CYSTITIS INTERSTITIAL
     Route: 048
     Dates: start: 20110501
  5. IRON SUPPLEMENT [Concomitant]
     Indication: IRON DEFICIENCY ANAEMIA
     Route: 048
     Dates: start: 20110201

REACTIONS (2)
  - COELIAC DISEASE [None]
  - DYSPEPSIA [None]
